FAERS Safety Report 23132584 (Version 1)
Quarter: 2023Q4

REPORT INFORMATION
  Report Type: Spontaneous
  Country: JP (occurrence: JP)
  Receive Date: 20231101
  Receipt Date: 20231101
  Transmission Date: 20240110
  Serious: Yes (Hospitalization)
  Sender: FDA-Public Use
  Company Number: JP-CHEPLA-2023013570

PATIENT
  Age: 69 Year
  Sex: Male

DRUGS (16)
  1. GANCICLOVIR [Suspect]
     Active Substance: GANCICLOVIR
     Dosage: I.V.INFUSION, IV DRIP
     Route: 042
     Dates: start: 20141204
  2. SIMPONI [Suspect]
     Active Substance: GOLIMUMAB
     Indication: Rheumatoid arthritis
     Dosage: DAILY DOSE: 100 MILLIGRAM
     Route: 058
     Dates: start: 201407
  3. BUCILLAMINE [Concomitant]
     Active Substance: BUCILLAMINE
     Dates: start: 201405, end: 201409
  4. SULFAMETHOXAZOLE\TRIMETHOPRIM [Concomitant]
     Active Substance: SULFAMETHOXAZOLE\TRIMETHOPRIM
     Dates: start: 20141204
  5. IGURATIMOD [Concomitant]
     Active Substance: IGURATIMOD
     Dates: start: 20150223
  6. BETAMETHASONE [Concomitant]
     Active Substance: BETAMETHASONE
     Dates: start: 20150330
  7. ABATACEPT [Concomitant]
     Active Substance: ABATACEPT
     Dates: start: 20150518
  8. DIMEMORFAN PHOSPHATE [Concomitant]
     Active Substance: DIMEMORFAN PHOSPHATE
  9. CODEINE PHOSPHATE [Concomitant]
     Active Substance: CODEINE PHOSPHATE
  10. AMLODIPINE [Concomitant]
     Active Substance: AMLODIPINE BESYLATE
  11. FAMOTIDINE [Concomitant]
     Active Substance: FAMOTIDINE
  12. Adenosine triphosphate/Disodium salt [Concomitant]
  13. LOXOPROFEN [Concomitant]
     Active Substance: LOXOPROFEN
  14. REBAMIPIDE [Concomitant]
     Active Substance: REBAMIPIDE
  15. CARBOCYSTEINE [Concomitant]
     Active Substance: CARBOCYSTEINE
  16. DEXAMETHASONE [Concomitant]
     Active Substance: DEXAMETHASONE

REACTIONS (2)
  - Haemoptysis [Unknown]
  - Hypoxia [Unknown]

NARRATIVE: CASE EVENT DATE: 20141201
